FAERS Safety Report 20904062 (Version 1)
Quarter: 2022Q2

REPORT INFORMATION
  Report Type: Spontaneous
  Country: US (occurrence: US)
  Receive Date: 20220602
  Receipt Date: 20220602
  Transmission Date: 20220721
  Serious: Yes (Other)
  Sender: FDA-Public Use
  Company Number: US-SUN PHARMACEUTICAL INDUSTRIES LTD-2022R1-338756

PATIENT
  Age: 74 Year
  Sex: Female

DRUGS (2)
  1. TETRABENAZINE [Suspect]
     Active Substance: TETRABENAZINE
     Indication: Tardive dyskinesia
     Dosage: UNK
     Route: 065
  2. DEUTETRABENAZINE [Suspect]
     Active Substance: DEUTETRABENAZINE
     Indication: Tardive dyskinesia
     Dosage: UNK
     Route: 065

REACTIONS (1)
  - Parkinsonism [Unknown]
